FAERS Safety Report 24570517 (Version 1)
Quarter: 2024Q4

REPORT INFORMATION
  Report Type: Spontaneous
  Country: US (occurrence: None)
  Receive Date: 20241031
  Receipt Date: 20241031
  Transmission Date: 20250115
  Serious: Yes (Other)
  Sender: Public
  Company Number: None

PATIENT
  Age: 40 Year
  Sex: Female

DRUGS (4)
  1. AVSOLA [Suspect]
     Active Substance: INFLIXIMAB-AXXQ
     Indication: Crohn^s disease
     Dosage: FREQUENCY: ADMINISTER 5 MG PER KG INTRAVENOUSLY EVERY 6 WEEKS
     Route: 042
     Dates: start: 20240319
  2. CLARITIN [Concomitant]
     Active Substance: LORATADINE
  3. VITAMINS [Concomitant]
     Active Substance: VITAMINS
  4. PROZAC [Concomitant]
     Active Substance: FLUOXETINE HYDROCHLORIDE

REACTIONS (1)
  - Breast cancer [None]

NARRATIVE: CASE EVENT DATE: 20240605
